FAERS Safety Report 7957407-5 (Version None)
Quarter: 2011Q4

REPORT INFORMATION
  Report Type: 
  Country: None (occurrence: None)
  Receive Date: 20111205
  Receipt Date: 20111201
  Transmission Date: 20120403
  Serious: Yes (Hospitalization, Other)
  Sender: FDA-Public Use
  Company Number: US-MERCK-1109USA01913

PATIENT
  Age: 56 Year
  Sex: Female

DRUGS (6)
  1. FOSAMAX [Suspect]
     Indication: OSTEOPOROSIS
     Route: 048
     Dates: start: 20000101, end: 20091101
  2. FOSAMAX [Suspect]
     Indication: PROPHYLAXIS
     Route: 048
     Dates: start: 20000101, end: 20091101
  3. FORTEO [Concomitant]
     Indication: OSTEOPOROSIS
     Route: 065
     Dates: start: 20091104
  4. FOSAMAX [Suspect]
     Route: 048
     Dates: start: 20000101, end: 20091101
  5. CORTICOSTEROIDS (UNSPECIFIED) [Concomitant]
     Indication: SYSTEMIC LUPUS ERYTHEMATOSUS
     Route: 065
  6. FOSAMAX [Suspect]
     Route: 048
     Dates: start: 20000101, end: 20091101

REACTIONS (50)
  - HAEMORRHAGIC ANAEMIA [None]
  - DEHYDRATION [None]
  - HIP FRACTURE [None]
  - STRESS FRACTURE [None]
  - VITAMIN B12 DEFICIENCY [None]
  - AORTIC CALCIFICATION [None]
  - BRONCHITIS [None]
  - HYPERLIPIDAEMIA [None]
  - HIATUS HERNIA [None]
  - ELECTROCARDIOGRAM T WAVE INVERSION [None]
  - PULMONARY HYPERTENSION [None]
  - CALCIUM DEFICIENCY [None]
  - THROMBOSIS PROPHYLAXIS [None]
  - RESPIRATORY DISTRESS [None]
  - RETINAL TOXICITY [None]
  - WEIGHT INCREASED [None]
  - ORAL DISORDER [None]
  - MYALGIA [None]
  - CARDIOMEGALY [None]
  - CULTURE URINE POSITIVE [None]
  - UTERINE DISORDER [None]
  - ANXIETY [None]
  - VITAMIN D DEFICIENCY [None]
  - ADVERSE DRUG REACTION [None]
  - BURSITIS [None]
  - HOT FLUSH [None]
  - POOR QUALITY SLEEP [None]
  - OSTEOPOROSIS POSTMENOPAUSAL [None]
  - NIGHT SWEATS [None]
  - LIVER FUNCTION TEST ABNORMAL [None]
  - CHILLS [None]
  - FEMUR FRACTURE [None]
  - DRUG INEFFECTIVE [None]
  - FALL [None]
  - URINARY TRACT INFECTION [None]
  - ANAEMIA [None]
  - OSTEOARTHRITIS [None]
  - PULMONARY FIBROSIS [None]
  - PNEUMONIA [None]
  - TROPONIN INCREASED [None]
  - DIARRHOEA [None]
  - CARDIAC MURMUR [None]
  - HYPERTENSION [None]
  - GOUT [None]
  - FIBROMYALGIA [None]
  - TENDON DISORDER [None]
  - OSTEOPOROSIS [None]
  - OSTEOMALACIA [None]
  - NODULE [None]
  - SPINAL OSTEOARTHRITIS [None]
